FAERS Safety Report 4869855-0 (Version None)
Quarter: 2005Q4

REPORT INFORMATION
  Report Type: 
  Country: None (occurrence: None)
  Receive Date: 20051230
  Receipt Date: 20051005
  Transmission Date: 20060501
  Serious: Yes (Death, Hospitalization, Other)
  Sender: FDA-Public Use
  Company Number: US-MERCK-0510USA04494

PATIENT
  Age: 61 Year
  Sex: Male

DRUGS (8)
  1. VERAPAMIL [Concomitant]
     Indication: PAIN IN EXTREMITY
     Route: 048
     Dates: start: 20010101, end: 20030101
  2. VIOXX [Suspect]
     Indication: PAIN IN EXTREMITY
     Route: 048
     Dates: start: 20010101, end: 20030101
  3. VIOXX [Suspect]
     Route: 048
     Dates: start: 20020628
  4. DIOVAN HCT [Concomitant]
     Route: 048
  5. ARICEPT [Concomitant]
     Route: 048
  6. K-DUR 10 [Concomitant]
     Route: 048
  7. LIPITOR [Concomitant]
     Route: 048
  8. LORTAB [Concomitant]
     Route: 065

REACTIONS (32)
  - ALANINE AMINOTRANSFERASE INCREASED [None]
  - ARRHYTHMIA [None]
  - ASPARTATE AMINOTRANSFERASE INCREASED [None]
  - BLOOD PRESSURE FLUCTUATION [None]
  - BLOOD PRESSURE INCREASED [None]
  - CARDIAC MURMUR [None]
  - CARDIOVASCULAR DISORDER [None]
  - CEREBROVASCULAR ACCIDENT [None]
  - CHRONIC OBSTRUCTIVE PULMONARY DISEASE [None]
  - COORDINATION ABNORMAL [None]
  - CORONARY ARTERY DISEASE [None]
  - DEATH [None]
  - DEMENTIA ALZHEIMER'S TYPE [None]
  - EPISTAXIS [None]
  - EXOSTOSIS [None]
  - FALL [None]
  - HEADACHE [None]
  - HYPERCHOLESTEROLAEMIA [None]
  - HYPERTENSION [None]
  - INCONTINENCE [None]
  - JOINT INJURY [None]
  - LACUNAR INFARCTION [None]
  - METABOLIC ENCEPHALOPATHY [None]
  - MYOCARDIAL INFARCTION [None]
  - ORTHOSTATIC HYPOTENSION [None]
  - PALPITATIONS [None]
  - PARKINSON'S DISEASE [None]
  - PSYCHOMOTOR RETARDATION [None]
  - SUPRAVENTRICULAR TACHYCARDIA [None]
  - SYNCOPE [None]
  - TREATMENT NONCOMPLIANCE [None]
  - VASCULAR DEMENTIA [None]
